FAERS Safety Report 24804490 (Version 3)
Quarter: 2025Q2

REPORT INFORMATION
  Report Type: Report from Study
  Country: BR (occurrence: BR)
  Receive Date: 20250103
  Receipt Date: 20250429
  Transmission Date: 20250717
  Serious: Yes (Other)
  Sender: BAYER HEALTHCARE PHARMACEUTICALS INC.
  Company Number: BR-BAYER-2024A162552

PATIENT
  Age: 62 Year
  Sex: Female

DRUGS (6)
  1. STIVARGA [Suspect]
     Active Substance: REGORAFENIB MONOHYDRATE
     Dosage: 80 MG, QD
     Dates: start: 202411
  2. STIVARGA [Suspect]
     Active Substance: REGORAFENIB MONOHYDRATE
     Dosage: 120 MG, QD
     Dates: start: 2024
  3. LOSARTAN [Concomitant]
     Active Substance: LOSARTAN
     Indication: Hypertension
     Dosage: 100 MG, QD
     Dates: start: 2020
  4. METFORMIN HYDROCHLORIDE [Concomitant]
     Active Substance: METFORMIN HYDROCHLORIDE
     Indication: Diabetes mellitus
     Dosage: 500 MG, QD
     Dates: start: 2004
  5. HYDROCHLOROTHIAZIDE [Concomitant]
     Active Substance: HYDROCHLOROTHIAZIDE
     Indication: Hypertension
     Dosage: 25 MG, QD
     Dates: start: 2022
  6. LORATADINE [Concomitant]
     Active Substance: LORATADINE
     Indication: Hypersensitivity
     Dosage: 20 MG, QD
     Dates: start: 202410

REACTIONS (12)
  - Poisoning [Recovering/Resolving]
  - Dry eye [Recovering/Resolving]
  - Visual impairment [Recovering/Resolving]
  - Nasal dryness [Recovering/Resolving]
  - Skin exfoliation [Recovering/Resolving]
  - Skin haemorrhage [Recovered/Resolved]
  - Palmar-plantar erythrodysaesthesia syndrome [Recovering/Resolving]
  - Dry skin [Recovering/Resolving]
  - Dry mouth [Recovering/Resolving]
  - Incorrect dose administered [None]
  - Skin laceration [Recovering/Resolving]
  - Vision blurred [Not Recovered/Not Resolved]

NARRATIVE: CASE EVENT DATE: 20240101
